FAERS Safety Report 6063921-2 (Version None)
Quarter: 2009Q1

REPORT INFORMATION
  Report Type: 
  Country: None (occurrence: None)
  Receive Date: 20090204
  Receipt Date: 20090122
  Transmission Date: 20090719
  Serious: Yes (Hospitalization)
  Sender: FDA-Public Use
  Company Number: PHBS2009TR00661

PATIENT
  Age: 25 Year
  Sex: Male

DRUGS (1)
  1. CAFERGOT [Suspect]
     Indication: MIGRAINE
     Dosage: ERGO 0.74 / CAFF 80 MG/DAY

REACTIONS (5)
  - FEELING COLD [None]
  - PAIN IN EXTREMITY [None]
  - PALLOR [None]
  - PULSE ABSENT [None]
  - VASOSPASM [None]
